FAERS Safety Report 8183782-5 (Version None)
Quarter: 2012Q1

REPORT INFORMATION
  Report Type: 
  Country: None (occurrence: None)
  Receive Date: 20120305
  Receipt Date: 20120301
  Transmission Date: 20120608
  Serious: Yes (Death)
  Sender: FDA-Public Use
  Company Number: PHHY2012JP008829

PATIENT
  Sex: Female

DRUGS (1)
  1. EXELON [Suspect]
     Indication: DEMENTIA ALZHEIMER'S TYPE
     Dosage: 4.5 MG, DAILY
     Route: 062

REACTIONS (4)
  - EMPHYSEMA [None]
  - BACTERIAL INFECTION [None]
  - CONDITION AGGRAVATED [None]
  - PNEUMONIA ASPIRATION [None]
